FAERS Safety Report 9912645 (Version 1)
Quarter: 2014Q1

REPORT INFORMATION
  Report Type: Spontaneous
  Country: US (occurrence: US)
  Receive Date: 20140220
  Receipt Date: 20140220
  Transmission Date: 20141002
  Serious: Yes (Other)
  Sender: FDA-Public Use
  Company Number: US-ROCHE-1286002

PATIENT
  Sex: Female

DRUGS (2)
  1. LUCENTIS [Suspect]
     Indication: AGE-RELATED MACULAR DEGENERATION
     Route: 065
  2. AVASTIN [Suspect]
     Indication: AGE-RELATED MACULAR DEGENERATION
     Route: 065

REACTIONS (11)
  - Eye irritation [Unknown]
  - Nausea [Unknown]
  - Burning sensation [Unknown]
  - Eye pain [Unknown]
  - Nausea [Unknown]
  - Dehydration [Unknown]
  - Drug ineffective [Unknown]
  - Dry eye [Unknown]
  - Eye pain [Unknown]
  - Asthenia [Unknown]
  - Tremor [Unknown]
